FAERS Safety Report 25659184 (Version 2)
Quarter: 2025Q3

REPORT INFORMATION
  Report Type: Report from Study
  Country: US (occurrence: US)
  Receive Date: 20250808
  Receipt Date: 20250828
  Transmission Date: 20251020
  Serious: No
  Sender: SUNOVION
  Company Number: US-SUMITOMO PHARMA SWITZERLAND GMBH-2025SPA000146

PATIENT
  Age: 57 Year
  Sex: Male

DRUGS (10)
  1. ORGOVYX [Suspect]
     Active Substance: RELUGOLIX
     Indication: Prostate cancer
     Route: 048
  2. ORGOVYX [Suspect]
     Active Substance: RELUGOLIX
     Dosage: 120 MG, QD
     Route: 048
     Dates: start: 202411
  3. NUBEQA [Concomitant]
     Active Substance: DAROLUTAMIDE
  4. PREDNISONE [Concomitant]
     Active Substance: PREDNISONE
  5. VITAMIN D [Concomitant]
     Active Substance: VITAMIN D NOS
  6. NIFEDIPINE [Concomitant]
     Active Substance: NIFEDIPINE
  7. PROCHLORPERAZINE [Concomitant]
     Active Substance: PROCHLORPERAZINE
  8. ROSUVASTATIN [Concomitant]
     Active Substance: ROSUVASTATIN
  9. Vitamin d3 + k2 [Concomitant]
  10. VITAMIN B [Concomitant]
     Active Substance: VITAMIN B

REACTIONS (4)
  - Quality of life decreased [Unknown]
  - Constipation [Unknown]
  - Hot flush [Not Recovered/Not Resolved]
  - Weight increased [Unknown]
